FAERS Safety Report 8132566-2 (Version None)
Quarter: 2012Q1

REPORT INFORMATION
  Report Type: 
  Country: None (occurrence: None)
  Receive Date: 20120213
  Receipt Date: 20120208
  Transmission Date: 20120608
  Serious: Yes (Hospitalization, Other)
  Sender: FDA-Public Use
  Company Number: JP-PFIZER INC-2012020081

PATIENT
  Age: 88 Year
  Sex: Female
  Weight: 35 kg

DRUGS (15)
  1. PRAVASTATIN SODIUM [Concomitant]
     Indication: HYPERCHOLESTEROLAEMIA
     Dosage: 10 MG, 1X/DAY
     Route: 048
     Dates: start: 20070101
  2. RHYTHMY [Concomitant]
     Indication: INSOMNIA
     Dosage: 1 MG, 1X/DAY
     Route: 048
     Dates: start: 20070101
  3. LYRICA [Suspect]
     Indication: PAIN IN EXTREMITY
     Dosage: 25 MG, 2X/DAY
     Route: 048
     Dates: start: 20111102, end: 20111121
  4. MOBIC [Suspect]
     Indication: PAIN IN EXTREMITY
     Dosage: 10 MG, 1X/DAY
     Route: 048
     Dates: start: 20080417, end: 20111122
  5. PLETAL [Concomitant]
     Indication: CEREBRAL INFARCTION
     Dosage: 100 MG, 2X/DAY
     Route: 048
     Dates: start: 20070101
  6. SITAGLIPTIN PHOSPHATE [Concomitant]
     Indication: DIABETES MELLITUS
     Dosage: 50 MG, 1X/DAY
     Route: 048
     Dates: start: 20111101
  7. ALENDRONATE SODIUM [Concomitant]
     Indication: OSTEOPOROSIS
     Dosage: 35 MG, WEEKLY
     Route: 048
     Dates: start: 20070101
  8. LASIX [Concomitant]
     Indication: CARDIAC FAILURE
     Dosage: 20 MG, 1X/DAY
     Route: 048
     Dates: start: 20111119, end: 20111130
  9. VOLTAREN [Suspect]
     Indication: PAIN IN EXTREMITY
     Dosage: 25 MG, AS NEEDED
     Route: 054
     Dates: start: 20110825, end: 20111115
  10. NORVASC [Concomitant]
     Indication: HYPERTENSION
     Dosage: 5 MG, 1X/DAY
     Route: 048
     Dates: start: 20070101
  11. AMARYL [Concomitant]
     Indication: DIABETES MELLITUS
     Dosage: 1 MG, 1X/DAY
     Route: 048
     Dates: start: 20111105
  12. CODEINE PHOSPHATE [Concomitant]
     Indication: PAIN IN EXTREMITY
     Dosage: 3 G, 1X/DAY
     Route: 048
     Dates: start: 20111102, end: 20111213
  13. LASIX [Concomitant]
     Dosage: 10 MG, 1X/DAY
     Route: 048
     Dates: start: 20111201
  14. CANDESARTAN CILEXETIL [Concomitant]
     Indication: HYPERTENSION
     Dosage: 12 MG, 1X/DAY
     Route: 048
     Dates: start: 20070101
  15. ATELEC [Concomitant]
     Indication: HYPERTENSION
     Dosage: 5 MG, 1X/DAY
     Route: 048
     Dates: start: 20070101

REACTIONS (7)
  - WEIGHT INCREASED [None]
  - BRONCHITIS [None]
  - VOMITING [None]
  - PYREXIA [None]
  - CARDIOMEGALY [None]
  - CARDIAC FAILURE [None]
  - DIARRHOEA [None]
